FAERS Safety Report 10750344 (Version 1)
Quarter: 2015Q1

REPORT INFORMATION
  Report Type: Spontaneous
  Country: DE (occurrence: DE)
  Receive Date: 20150130
  Receipt Date: 20150130
  Transmission Date: 20150721
  Serious: Yes (Hospitalization, Other)
  Sender: FDA-Public Use
  Company Number: DE-BRISTOL-MYERS SQUIBB COMPANY-BMS-2015-003498

PATIENT
  Sex: Male

DRUGS (9)
  1. ELIQUIS [Suspect]
     Active Substance: APIXABAN
     Dosage: 5 MG, 2 X DAY
  2. METFORMIN HYDROCHLORIDE. [Concomitant]
     Active Substance: METFORMIN HYDROCHLORIDE
  3. PHENYTOIN. [Concomitant]
     Active Substance: PHENYTOIN
  4. ELIQUIS [Suspect]
     Active Substance: APIXABAN
     Indication: CEREBROVASCULAR ACCIDENT PROPHYLAXIS
     Dosage: 5 MG, BID
     Route: 065
  5. METOPROLOL [Suspect]
     Active Substance: METOPROLOL
     Indication: PRODUCT USED FOR UNKNOWN INDICATION
     Route: 065
  6. SIMVASTATIN. [Concomitant]
     Active Substance: SIMVASTATIN
  7. TORASEMIDE [Concomitant]
     Active Substance: TORSEMIDE
  8. HYDROCHLOROTHIAZIDE. [Concomitant]
     Active Substance: HYDROCHLOROTHIAZIDE
  9. RAMI Q [Concomitant]

REACTIONS (5)
  - Painful defaecation [Unknown]
  - Chills [Unknown]
  - Blood glucose increased [Unknown]
  - Hyperhidrosis [Unknown]
  - Seizure [Unknown]
